FAERS Safety Report 23691110 (Version 1)
Quarter: 2024Q2

REPORT INFORMATION
  Report Type: Spontaneous
  Country: US (occurrence: US)
  Receive Date: 20240401
  Receipt Date: 20240401
  Transmission Date: 20240715
  Serious: No
  Sender: FDA-Public Use
  Company Number: US-ALKEM LABORATORIES LIMITED-US-ALKEM-2024-00697

PATIENT
  Age: 59 Year
  Sex: Female

DRUGS (14)
  1. CLOZAPINE [Interacting]
     Active Substance: CLOZAPINE
     Indication: Major depression
     Dosage: UNK
     Route: 065
  2. CLOZAPINE [Interacting]
     Active Substance: CLOZAPINE
     Dosage: UNK (DOSE GRADUALLY INCREASING TO 75 MG IN THE MORNING AND 125 MG WITH A LEVEL OF 312 MICROGRAM/LITE
     Route: 065
  3. CLOZAPINE [Interacting]
     Active Substance: CLOZAPINE
     Dosage: UNK (DOSE WAS REDUCED TO 25 MG IN THE MORNING AND 50 MG IN THE EVENING TO AVOID TOXICITY)
     Route: 065
  4. CLOZAPINE [Interacting]
     Active Substance: CLOZAPINE
     Dosage: UNK (INCREASED TO THE PREVIOUS DOSE OF 75 MG IN THE MORNING AND 125 MG IN THE EVENING)
     Route: 065
  5. CLOZAPINE [Interacting]
     Active Substance: CLOZAPINE
     Dosage: 50 MILLIGRAM (REDUCED FURTHER TO 50 MG TWICE DAILY)
     Route: 065
  6. DULOXETINE [Suspect]
     Active Substance: DULOXETINE
     Indication: Major depression
     Dosage: 60 MILLIGRAM, QD (DAILY)
     Route: 065
  7. VENLAFAXINE [Suspect]
     Active Substance: VENLAFAXINE HYDROCHLORIDE
     Indication: Major depression
     Dosage: 150 MILLIGRAM, QD (DAILY)
     Route: 065
  8. TRAZODONE [Suspect]
     Active Substance: TRAZODONE HYDROCHLORIDE
     Indication: Major depression
     Dosage: UNK
     Route: 065
  9. BUPROPION [Suspect]
     Active Substance: BUPROPION
     Indication: Major depression
     Dosage: 300 MILLIGRAM, QD (DAILY)
     Route: 065
  10. CLONAZEPAM [Suspect]
     Active Substance: CLONAZEPAM
     Indication: Major depression
     Dosage: 0.5 MILLIGRAM, BID (TWICE DAILY)
     Route: 065
  11. LITHIUM [Interacting]
     Active Substance: LITHIUM
     Indication: Major depression
     Dosage: 300 MILLIGRAM, QD (DAILY)
     Route: 065
  12. LITHIUM [Interacting]
     Active Substance: LITHIUM
     Dosage: 450 MILLIGRAM, QD (GRADUALLY INCREASED TO 450 MG IN THE EVENING BY DAY 50, WITH A CORRESPONDING LEVE
     Route: 065
  13. LITHIUM [Interacting]
     Active Substance: LITHIUM
     Dosage: 300 MILLIGRAM, QD (REDUCED ON DAY 62 (LEVEL 0.3 MEQ/L))
     Route: 065
  14. MIRTAZAPINE [Suspect]
     Active Substance: MIRTAZAPINE
     Indication: Major depression
     Dosage: 45 MILLIGRAM, QD (DAILY)
     Route: 065

REACTIONS (3)
  - Myoclonus [Recovered/Resolved]
  - Treatment failure [Unknown]
  - Drug interaction [Unknown]
